FAERS Safety Report 10779982 (Version 2)
Quarter: 2015Q3

REPORT INFORMATION
  Report Type: Spontaneous
  Country: JO (occurrence: None)
  Receive Date: 20150206
  Receipt Date: 20150701
  Transmission Date: 20151125
  Serious: Yes (Life-Threatening)
  Sender: FDA-Public Use
  Company Number: JO-FAC-000001

PATIENT
  Age: 65 Year
  Sex: Male

DRUGS (1)
  1. CEFTRIAXONE. [Suspect]
     Active Substance: CEFTRIAXONE
     Indication: URINARY TRACT INFECTION
     Dosage: 1 X 1 G EVERY 1 DAY(S) INTRAVENOUS
     Route: 042

REACTIONS (5)
  - Kounis syndrome [None]
  - Coronary artery stenosis [None]
  - Fall [None]
  - Blood pressure decreased [None]
  - Atrioventricular block [None]
